FAERS Safety Report 15804499 (Version 1)
Quarter: 2019Q1

REPORT INFORMATION
  Report Type: Spontaneous
  Country: RO (occurrence: RO)
  Receive Date: 20190109
  Receipt Date: 20190109
  Transmission Date: 20190417
  Serious: Yes (Hospitalization, Other)
  Sender: FDA-Public Use
  Company Number: RO-OTSUKA-2018_021934

PATIENT
  Age: 35 Year
  Sex: Male

DRUGS (32)
  1. CLOZAPINE. [Suspect]
     Active Substance: CLOZAPINE
     Indication: SCHIZOPHRENIA
     Dosage: 100 MG, QD
     Route: 065
     Dates: start: 2018
  2. CLOZAPINE. [Suspect]
     Active Substance: CLOZAPINE
     Indication: NARCISSISTIC PERSONALITY DISORDER
     Dosage: 500 MG, QD (INCREASED 100 MG/WEEK, UP TO 500 MG/DAY)
     Route: 065
     Dates: start: 2018
  3. CLOZAPINE. [Suspect]
     Active Substance: CLOZAPINE
     Indication: PSYCHOTIC DISORDER
     Dosage: 75 MG, QD
     Route: 048
     Dates: start: 2018
  4. QUETIAPINE. [Suspect]
     Active Substance: QUETIAPINE
     Indication: SCHIZOPHRENIA
     Dosage: 600 MG, QD
     Route: 065
     Dates: start: 20150416, end: 20150525
  5. AMISULPRIDE [Suspect]
     Active Substance: AMISULPRIDE
     Dosage: 400 MG, QD
     Route: 048
     Dates: start: 2018
  6. TRIHEXYPHENIDYL [Concomitant]
     Active Substance: TRIHEXYPHENIDYL
     Indication: PRODUCT USED FOR UNKNOWN INDICATION
     Dosage: 6 MG, QD
     Route: 065
  7. RISPERIDONE. [Concomitant]
     Active Substance: RISPERIDONE
     Dosage: 6 MG, QD
     Route: 048
     Dates: start: 2015
  8. SODIUM VALPROATE [Concomitant]
     Active Substance: VALPROATE SODIUM
     Indication: PRODUCT USED FOR UNKNOWN INDICATION
     Dosage: 1500 MG, QD
     Route: 065
  9. CLOZAPINE. [Suspect]
     Active Substance: CLOZAPINE
     Dosage: 500 MG, QD
     Route: 048
     Dates: start: 2018
  10. OLANZAPINE. [Suspect]
     Active Substance: OLANZAPINE
     Dosage: 15 MG, QD
     Route: 065
  11. AMISULPRIDE [Suspect]
     Active Substance: AMISULPRIDE
     Indication: PRODUCT USED FOR UNKNOWN INDICATION
     Dosage: 200 MG, QD
     Route: 065
     Dates: start: 2018
  12. CLOZAPINE. [Suspect]
     Active Substance: CLOZAPINE
     Indication: PSYCHOTIC DISORDER
     Dosage: 25 MG, QD (SLOW INCREASE IN DOSE BY 25 MG/WEEK (IN THE FIRST 4 WEEKS))
     Route: 065
     Dates: start: 20150615, end: 20150807
  13. CLOZAPINE. [Suspect]
     Active Substance: CLOZAPINE
     Dosage: 25 MG, QD
     Route: 048
     Dates: start: 2018
  14. CLOZAPINE. [Suspect]
     Active Substance: CLOZAPINE
     Dosage: 25 MG, QW
     Route: 048
     Dates: start: 2018
  15. OLANZAPINE. [Suspect]
     Active Substance: OLANZAPINE
     Dosage: 15 MG, QD
     Route: 048
     Dates: start: 20150526, end: 20180614
  16. ZIPRASIDONE. [Concomitant]
     Active Substance: ZIPRASIDONE
     Indication: PRODUCT USED FOR UNKNOWN INDICATION
     Dosage: 80 MG, QD
     Route: 065
     Dates: start: 20150615, end: 20150807
  17. OLANZAPINE. [Suspect]
     Active Substance: OLANZAPINE
     Dosage: 15 MG, QD (DOSE INCREASED FOM 5MG/DAY TO 15 MG/DAY)
     Route: 065
  18. ZIPRASIDONE. [Concomitant]
     Active Substance: ZIPRASIDONE
     Dosage: 6 MG, QD
     Route: 065
  19. OLANZAPINE. [Suspect]
     Active Substance: OLANZAPINE
     Indication: SCHIZOPHRENIA
     Dosage: 5 MG, QD, DOSE DECREASED FROM 15MG/DAY
     Route: 065
     Dates: start: 2006
  20. PALIPERIDONE. [Suspect]
     Active Substance: PALIPERIDONE
     Indication: PRODUCT USED FOR UNKNOWN INDICATION
     Dosage: 6 MG, QD
     Route: 065
     Dates: start: 20151002
  21. PALIPERIDONE. [Suspect]
     Active Substance: PALIPERIDONE
     Dosage: 9 MG, QD
     Route: 065
  22. LAMOTRIGINE. [Concomitant]
     Active Substance: LAMOTRIGINE
     Indication: PRODUCT USED FOR UNKNOWN INDICATION
     Dosage: 200 MG, QD
     Route: 065
  23. SODIUM VALPROATE [Concomitant]
     Active Substance: VALPROATE SODIUM
     Dosage: 300 MG, QD
     Route: 065
  24. OLANZAPINE. [Suspect]
     Active Substance: OLANZAPINE
     Indication: NARCISSISTIC PERSONALITY DISORDER
     Dosage: 20 MG, QD
     Route: 065
     Dates: start: 2018
  25. RISPERIDONE. [Concomitant]
     Active Substance: RISPERIDONE
     Indication: PRODUCT USED FOR UNKNOWN INDICATION
     Dosage: 6 ML, QD
     Route: 048
     Dates: start: 20150615, end: 20150807
  26. LAMOTRIGINE. [Concomitant]
     Active Substance: LAMOTRIGINE
     Dosage: 25 MG, QD (INCREASE IN DOSE UNTIL WEEK 6 T0 200MG/DAY)
     Route: 065
  27. ARIPIPRAZOLE. [Suspect]
     Active Substance: ARIPIPRAZOLE
     Indication: SCHIZOPHRENIA
     Dosage: 400 MG, QMO
     Route: 065
     Dates: start: 20150526, end: 20180614
  28. ARIPIPRAZOLE. [Suspect]
     Active Substance: ARIPIPRAZOLE
     Indication: NARCISSISTIC PERSONALITY DISORDER
  29. CLOZAPINE. [Suspect]
     Active Substance: CLOZAPINE
     Dosage: 500 MG, QD
     Route: 048
     Dates: start: 20180129
  30. QUETIAPINE. [Suspect]
     Active Substance: QUETIAPINE
     Indication: NARCISSISTIC PERSONALITY DISORDER
  31. PALIPERIDONE. [Suspect]
     Active Substance: PALIPERIDONE
     Dosage: 12.5 MG, QD
     Route: 065
  32. PALIPERIDONE. [Suspect]
     Active Substance: PALIPERIDONE
     Dosage: 12 MG, QD, SWITCHED TO CLOZAPINE
     Route: 065
     Dates: start: 20150615, end: 20150807

REACTIONS (12)
  - Skin abrasion [Unknown]
  - Suspiciousness [Recovering/Resolving]
  - Computerised tomogram abnormal [Unknown]
  - Abnormal behaviour [Unknown]
  - Transaminases increased [Unknown]
  - Extrapyramidal disorder [Recovering/Resolving]
  - Refusal of treatment by patient [Unknown]
  - Acute psychosis [Unknown]
  - Psychotic disorder [Unknown]
  - Neuroleptic malignant syndrome [Unknown]
  - Delusional perception [Recovering/Resolving]
  - Therapy non-responder [Unknown]

NARRATIVE: CASE EVENT DATE: 201507
